FAERS Safety Report 4504488-7 (Version None)
Quarter: 2004Q4

REPORT INFORMATION
  Report Type: 
  Country: None (occurrence: None)
  Receive Date: 20041118
  Receipt Date: 20041108
  Transmission Date: 20050328
  Serious: Yes (Life-Threatening, Hospitalization, Disabling)
  Sender: FDA-Public Use
  Company Number: US-MERCK-0411USA01519

PATIENT
  Age: 52 Year
  Sex: Female

DRUGS (4)
  1. VIOXX [Suspect]
     Indication: SURGERY
     Route: 048
     Dates: start: 20000201
  2. VIOXX [Suspect]
     Route: 048
     Dates: start: 20020601
  3. VIOXX [Suspect]
     Route: 048
     Dates: start: 20040301
  4. [THERAPY UNSPECIFIED] [Concomitant]
     Indication: MUSCLE RELAXANT THERAPY
     Route: 065

REACTIONS (1)
  - HEART RATE INCREASED [None]
